FAERS Safety Report 5478581-9 (Version None)
Quarter: 2007Q4

REPORT INFORMATION
  Report Type: 
  Country: None (occurrence: None)
  Receive Date: 20071005
  Receipt Date: 20071005
  Transmission Date: 20080405
  Serious: Yes (Hospitalization)
  Sender: FDA-Public Use
  Company Number: JP-GENENTECH-247159

PATIENT
  Sex: Male

DRUGS (4)
  1. BEVACIZUMAB [Suspect]
     Indication: RECTAL CANCER
     Dosage: 5 MG/KG, QD
     Route: 041
     Dates: start: 20070731
  2. OXALIPLATIN [Suspect]
     Indication: RECTAL CANCER
     Route: 041
     Dates: start: 20070731
  3. ISOVORIN [Suspect]
     Indication: RECTAL CANCER
     Route: 041
  4. FLUOROURACIL [Suspect]
     Indication: RECTAL CANCER
     Route: 041

REACTIONS (1)
  - FALL [None]
